FAERS Safety Report 9233423 (Version 1)
Quarter: 2013Q2

REPORT INFORMATION
  Report Type: Spontaneous
  Country: US (occurrence: US)
  Receive Date: 20130416
  Receipt Date: 20130416
  Transmission Date: 20140414
  Serious: No
  Sender: FDA-Public Use
  Company Number: US-BANPHARM-20131049

PATIENT
  Age: 51 Year
  Sex: Female
  Weight: 97.52 kg

DRUGS (1)
  1. ALEVE LIQUID GELS 220MG [Suspect]
     Indication: ARTHRITIS
     Dosage: 2 DF, BID,
     Route: 048
     Dates: start: 201106

REACTIONS (3)
  - Hypoaesthesia oral [Recovered/Resolved]
  - Incorrect dose administered [Unknown]
  - Incorrect drug administration duration [Unknown]
